FAERS Safety Report 8052712-9 (Version None)
Quarter: 2012Q1

REPORT INFORMATION
  Report Type: 
  Country: None (occurrence: None)
  Receive Date: 20120118
  Receipt Date: 20120118
  Transmission Date: 20120608
  Serious: Yes (Other)
  Sender: FDA-Public Use
  Company Number: None

PATIENT
  Age: 32 Year
  Sex: Male
  Weight: 78.017 kg

DRUGS (1)
  1. ATRIPLA [Suspect]
     Indication: URTICARIA
     Dosage: 1PILL
     Route: 048
     Dates: start: 20110615, end: 20120117

REACTIONS (8)
  - PAIN [None]
  - IMPAIRED WORK ABILITY [None]
  - DISTURBANCE IN ATTENTION [None]
  - TINNITUS [None]
  - HYPOACUSIS [None]
  - INSOMNIA [None]
  - HEADACHE [None]
  - ANXIETY [None]
